FAERS Safety Report 22588411 (Version 1)
Quarter: 2023Q2

REPORT INFORMATION
  Report Type: Spontaneous
  Country: JP (occurrence: JP)
  Receive Date: 20230612
  Receipt Date: 20230612
  Transmission Date: 20230721
  Serious: Yes (Other)
  Sender: FDA-Public Use
  Company Number: JP-AMGEN-JPNSP2022166994

PATIENT
  Age: 74 Year
  Sex: Male

DRUGS (1)
  1. LUMAKRAS [Suspect]
     Active Substance: SOTORASIB
     Indication: Non-small cell lung cancer
     Dosage: UNK MILLIGRAM
     Route: 048

REACTIONS (6)
  - Non-small cell lung cancer [Unknown]
  - Decreased appetite [Unknown]
  - Anaemia [Unknown]
  - Pneumonitis [Unknown]
  - Hypoaesthesia [Unknown]
  - Nausea [Unknown]
